FAERS Safety Report 17022243 (Version 1)
Quarter: 2019Q4

REPORT INFORMATION
  Report Type: Report from Study
  Country: CA (occurrence: CA)
  Receive Date: 20191112
  Receipt Date: 20191112
  Transmission Date: 20200122
  Serious: Yes (Other)
  Sender: FDA-Public Use
  Company Number: CA-JNJFOC-20191007283

PATIENT
  Age: 25 Year
  Sex: Male
  Weight: 64.7 kg

DRUGS (1)
  1. STELARA [Suspect]
     Active Substance: USTEKINUMAB
     Indication: CROHN^S DISEASE
     Dosage: STRENGTH = 90 MG
     Route: 058
     Dates: start: 20181102

REACTIONS (9)
  - Hypertension [Unknown]
  - Anxiety [Unknown]
  - Diarrhoea [Not Recovered/Not Resolved]
  - Product use issue [Unknown]
  - Drug dependence [Unknown]
  - Emotional disorder [Unknown]
  - Abdominal pain [Unknown]
  - Chlamydial infection [Unknown]
  - Off label use [Unknown]

NARRATIVE: CASE EVENT DATE: 20181102
